FAERS Safety Report 9055072 (Version 2)
Quarter: 2013Q4

REPORT INFORMATION
  Report Type: Report from Study
  Country: BR (occurrence: BR)
  Receive Date: 20130206
  Receipt Date: 20131105
  Transmission Date: 20140711
  Serious: Yes (Hospitalization, Other)
  Sender: FDA-Public Use
  Company Number: BR-ROCHE-1102070

PATIENT
  Sex: Female
  Weight: 73 kg

DRUGS (4)
  1. MABTHERA [Suspect]
     Indication: RHEUMATOID ARTHRITIS
     Route: 042
     Dates: start: 20120801
  2. PREDNISONE [Concomitant]
  3. METHOTREXATE [Concomitant]
  4. PARACETAMOL [Concomitant]
     Indication: PAIN

REACTIONS (3)
  - Drug ineffective [Unknown]
  - Cholelithiasis [Recovered/Resolved]
  - Hepatic infarction [Not Recovered/Not Resolved]
